FAERS Safety Report 15996456 (Version 2)
Quarter: 2019Q1

REPORT INFORMATION
  Report Type: Spontaneous
  Country: NL (occurrence: NL)
  Receive Date: 20190222
  Receipt Date: 20190222
  Transmission Date: 20190418
  Serious: Yes (Hospitalization, Other)
  Sender: FDA-Public Use
  Company Number: PHHY2019NL040054

PATIENT
  Age: 61 Year
  Sex: Female

DRUGS (9)
  1. CANDESARTAN. [Interacting]
     Active Substance: CANDESARTAN
     Indication: PRODUCT USED FOR UNKNOWN INDICATION
     Dosage: 8 MG, UNK
     Route: 065
  2. FENPROCOUMON [Concomitant]
     Active Substance: PHENPROCOUMON
     Indication: PRODUCT USED FOR UNKNOWN INDICATION
     Dosage: UNK
     Route: 065
  3. CAPTOPRIL. [Interacting]
     Active Substance: CAPTOPRIL
     Indication: PRODUCT USED FOR UNKNOWN INDICATION
     Dosage: 6.25 MG, BID (6.25 MG IN THE AFTERNOON AND 6.25 MG IN THE EVENING)
     Route: 065
  4. TRACYDAL [Interacting]
     Active Substance: TRANYLCYPROMINE SULFATE
     Indication: PRODUCT USED FOR UNKNOWN INDICATION
     Dosage: 70 MG, QD (INCREASED IN 3 WEEKS UP TO 70 MG)
     Route: 065
  5. TRACYDAL [Interacting]
     Active Substance: TRANYLCYPROMINE SULFATE
     Dosage: 10 MG, Q2H
     Route: 065
  6. HYDROCHLOROTHIAZIDE. [Suspect]
     Active Substance: HYDROCHLOROTHIAZIDE
     Indication: PRODUCT USED FOR UNKNOWN INDICATION
     Dosage: 12.5 MG, UNK
     Route: 065
  7. BISOPROLOL [Interacting]
     Active Substance: BISOPROLOL
     Indication: PRODUCT USED FOR UNKNOWN INDICATION
     Dosage: 5 MG, UNK
     Route: 065
  8. IPRATROPIUM [Concomitant]
     Active Substance: IPRATROPIUM
     Indication: PRODUCT USED FOR UNKNOWN INDICATION
     Dosage: UNK
     Route: 065
  9. METOCLOPRAMIDE. [Interacting]
     Active Substance: METOCLOPRAMIDE
     Indication: ORTHOSTATIC HYPOTENSION
     Dosage: 10 MG, Q72H
     Route: 065

REACTIONS (5)
  - Drug ineffective [Unknown]
  - Prescribed overdose [Recovering/Resolving]
  - Hypertensive crisis [Recovering/Resolving]
  - Potentiating drug interaction [Unknown]
  - Orthostatic hypotension [Recovering/Resolving]
